FAERS Safety Report 4887255-4 (Version None)
Quarter: 2005Q4

REPORT INFORMATION
  Report Type: 
  Country: None (occurrence: None)
  Receive Date: 20051220
  Receipt Date: 20041202
  Transmission Date: 20060501
  Serious: Yes (Other)
  Sender: FDA-Public Use
  Company Number: HQWYE787707DEC04

PATIENT
  Age: 51 Year
  Sex: Male
  Weight: 83 kg

DRUGS (3)
  1. EFFEXOR XR [Suspect]
     Indication: DEPRESSION
     Dosage: 75 MG 1X PER 1 DAY, ORAL ; 75 MG DAILY IN THE MORNING, 37.5 MG DAILY IN THE EVENING, ORAL
     Route: 048
  2. EFFEXOR XR [Suspect]
     Dosage: 75 MG 1X PER 1 DAY, ORAL
     Route: 048
  3. VISTARIL [Concomitant]

REACTIONS (2)
  - DIZZINESS [None]
  - FALL [None]
